FAERS Safety Report 8216087-4 (Version None)
Quarter: 2012Q1

REPORT INFORMATION
  Report Type: 
  Country: None (occurrence: None)
  Receive Date: 20120316
  Receipt Date: 20120314
  Transmission Date: 20120608
  Serious: No
  Sender: FDA-Public Use
  Company Number: US-BAYER-2012-026110

PATIENT
  Age: 6 Year
  Sex: Female
  Weight: 34.014 kg

DRUGS (1)
  1. ULTRAVIST 150 [Suspect]
     Indication: COMPUTERISED TOMOGRAM
     Dosage: 50 ML, UNK
     Dates: start: 20120314

REACTIONS (2)
  - SCRATCH [None]
  - URTICARIA [None]
